FAERS Safety Report 19059442 (Version 1)
Quarter: 2021Q1

REPORT INFORMATION
  Report Type: Spontaneous
  Country: MY (occurrence: MY)
  Receive Date: 20210325
  Receipt Date: 20210325
  Transmission Date: 20210420
  Serious: Yes (Hospitalization)
  Sender: FDA-Public Use
  Company Number: MY-BAUSCH-BL-2021-009093

PATIENT
  Age: 54 Year
  Sex: Male

DRUGS (9)
  1. SALBUTAMOL [Suspect]
     Active Substance: ALBUTEROL
     Dosage: METERED?DOSE INHALER (8 PUFFS 15 MINS LATER AS HIS ASTHMA ATTACK WAS SEVERE)
     Dates: start: 20201028, end: 20201031
  2. SALBUTAMOL [Suspect]
     Active Substance: ALBUTEROL
     Dosage: METERED?DOSE INHALER (HIGH DOSE) (WITHIN HALF HOUR AFTER PRESENTING IN THE EMERGENCY DEPARTMENT)
     Dates: start: 20201028, end: 20201031
  3. SALBUTAMOL [Suspect]
     Active Substance: ALBUTEROL
     Indication: ASTHMA
     Dosage: TWO PUFFS AS REQUIRED
  4. SALBUTAMOL [Suspect]
     Active Substance: ALBUTEROL
     Dosage: 2 PUFFS (METERED?DOSE INHALER)
     Dates: start: 20201030, end: 20201031
  5. GLICLAZIDE [Concomitant]
     Active Substance: GLICLAZIDE
     Indication: TYPE 2 DIABETES MELLITUS
  6. SALBUTAMOL [Suspect]
     Active Substance: ALBUTEROL
     Dosage: 8 PUFFS METERED?DOSE INHALER
     Dates: start: 20201028, end: 20201031
  7. SALBUTAMOL [Suspect]
     Active Substance: ALBUTEROL
     Dosage: 4 PUFFS (METERED?DOSE INHALER)
     Dates: start: 20201029, end: 20201031
  8. BUDESONIDE. [Concomitant]
     Active Substance: BUDESONIDE
     Indication: ASTHMA
     Dosage: METERED?DOSE INHALER, 2 PUFFS
  9. METFORMIN [Concomitant]
     Active Substance: METFORMIN HYDROCHLORIDE
     Indication: TYPE 2 DIABETES MELLITUS

REACTIONS (1)
  - Dyskinesia [Recovered/Resolved]

NARRATIVE: CASE EVENT DATE: 20201028
